FAERS Safety Report 11689312 (Version 2)
Quarter: 2015Q4

REPORT INFORMATION
  Report Type: Spontaneous
  Country: PT (occurrence: PT)
  Receive Date: 20151102
  Receipt Date: 20151104
  Transmission Date: 20160304
  Serious: Yes (Hospitalization)
  Sender: FDA-Public Use
  Company Number: PT-TEVA-605593ISR

PATIENT
  Age: 78 Year
  Sex: Male

DRUGS (2)
  1. VILDAGLIPTIN/METFORMIN CHLORIDRATE 50/1000MG [Suspect]
     Active Substance: METFORMIN HYDROCHLORIDE\VILDAGLIPTIN
     Indication: TYPE 2 DIABETES MELLITUS
     Dosage: 50/1000MG
     Route: 065
  2. HYDROCHLOROTHIAZIDE, TELMISARTAN [Concomitant]
     Indication: HYPERTENSION
     Dosage: 12.5 MG HYDROCHLOROTHIAZIDE AND 80 MG TELMISARTAN
     Route: 065

REACTIONS (3)
  - Acute kidney injury [Unknown]
  - Dialysis [None]
  - Lactic acidosis [Unknown]
